FAERS Safety Report 4315611-1 (Version None)
Quarter: 2004Q1

REPORT INFORMATION
  Report Type: 
  Country: None (occurrence: None)
  Receive Date: 20040309
  Receipt Date: 20040224
  Transmission Date: 20041129
  Serious: Yes (Hospitalization)
  Sender: FDA-Public Use
  Company Number: FABR-10480

PATIENT
  Age: 42 Year
  Sex: Male
  Weight: 105.2345 kg

DRUGS (13)
  1. FABRAZYME [Suspect]
     Indication: FABRY'S DISEASE
     Dosage: 1 MG/KG Q2WKS IV
     Route: 042
  2. PLAVIX [Concomitant]
  3. ZOCOR [Concomitant]
  4. CYCLOSPORINE [Concomitant]
  5. ANDROGEL [Concomitant]
  6. SOTALOL HCL [Concomitant]
  7. ALLOPURINOL [Concomitant]
  8. LASIX [Concomitant]
  9. PREDNISONE [Concomitant]
  10. NORVASC [Concomitant]
  11. DOXAZOSIN MESYLATE [Concomitant]
  12. LABETALOL HCL [Concomitant]
  13. NITROGLYCERIN [Concomitant]

REACTIONS (2)
  - CHEST PAIN [None]
  - CORONARY ARTERY STENOSIS [None]
